FAERS Safety Report 20898572 (Version 1)
Quarter: 2022Q2

REPORT INFORMATION
  Report Type: Spontaneous
  Country: US (occurrence: US)
  Receive Date: 20220601
  Receipt Date: 20220601
  Transmission Date: 20220720
  Serious: Yes (Other)
  Sender: FDA-Public Use
  Company Number: US-MACLEODS PHARMACEUTICALS US LTD-MAC2022035791

PATIENT

DRUGS (3)
  1. LOSARTAN [Suspect]
     Active Substance: LOSARTAN
     Indication: Hypertension
     Dosage: UNK
     Route: 065
  2. LOSARTAN [Suspect]
     Active Substance: LOSARTAN
     Dosage: UNK, INADVERTENT INCREASE IN THE DOSEUNK,UNK, INADVERTENT INCREASE IN THE DOSE
     Route: 065
  3. HYDROCHLOROTHIAZIDE [Concomitant]
     Active Substance: HYDROCHLOROTHIAZIDE
     Indication: Hypertension
     Dosage: UNK
     Route: 065

REACTIONS (4)
  - Arrhythmia supraventricular [Recovered/Resolved]
  - Condition aggravated [Recovered/Resolved]
  - Blood pressure decreased [Recovered/Resolved]
  - Wrong dose [Recovered/Resolved]
